FAERS Safety Report 19882649 (Version 1)
Quarter: 2021Q3

REPORT INFORMATION
  Report Type: Spontaneous
  Country: US (occurrence: US)
  Receive Date: 20210924
  Receipt Date: 20210924
  Transmission Date: 20211014
  Serious: No
  Sender: FDA-Public Use
  Company Number: US-SA-2021SA278573

PATIENT
  Age: 18 Year
  Sex: Female

DRUGS (4)
  1. FLUOCIN [FLUOCINOLONE ACETONIDE] [Concomitant]
     Active Substance: FLUOCINOLONE ACETONIDE
  2. BUPROPION HCL [Concomitant]
     Active Substance: BUPROPION HYDROCHLORIDE
  3. DESVENLAFAXINE. [Concomitant]
     Active Substance: DESVENLAFAXINE
  4. DUPIXENT [Suspect]
     Active Substance: DUPILUMAB
     Indication: DERMATITIS ATOPIC
     Dosage: 300 MG, QOW
     Route: 058
     Dates: start: 20210807

REACTIONS (1)
  - Night sweats [Not Recovered/Not Resolved]
